FAERS Safety Report 9966439 (Version 2)
Quarter: 2014Q1

REPORT INFORMATION
  Report Type: Report from Study
  Country: US (occurrence: US)
  Receive Date: 20140305
  Receipt Date: 20140305
  Transmission Date: 20141002
  Serious: No
  Sender: FDA-Public Use
  Company Number: US-ABBVIE-13P-163-1114427-00

PATIENT
  Age: 55 Year
  Sex: Male

DRUGS (11)
  1. HUMIRA [Suspect]
     Indication: CROHN^S DISEASE
     Dosage: LOADING DOSE
     Dates: start: 20130616
  2. HUMIRA [Suspect]
     Dates: start: 20130630
  3. HUMIRA [Suspect]
     Dates: start: 20130714
  4. NITRO BID [Concomitant]
     Indication: ANAL FISTULA INFECTION
  5. NITRO BID [Concomitant]
     Indication: PROPHYLAXIS
  6. VALIUM [Concomitant]
     Indication: PRODUCT USED FOR UNKNOWN INDICATION
     Dosage: 80 MG A DAY
  7. NEXIUM [Concomitant]
     Indication: GASTROOESOPHAGEAL REFLUX DISEASE
     Dosage: 40 MG DAILY
  8. DICYCLOMINE [Concomitant]
     Indication: MUSCLE SPASMS
     Dosage: 10 MG 1 CAP FOUR TIMES A DAY
  9. RHINOCORT AQUA [Concomitant]
     Indication: SINUS DISORDER
  10. CHOLESTYRAMINE [Concomitant]
     Indication: DIARRHOEA
     Dosage: 4 GMS ONCE DAILY
  11. VITAMIN D3 [Concomitant]
     Indication: PRODUCT USED FOR UNKNOWN INDICATION
     Dosage: 1000 UNITS ONCE DAILY

REACTIONS (7)
  - Malaise [Not Recovered/Not Resolved]
  - Anal fistula [Not Recovered/Not Resolved]
  - Diarrhoea [Not Recovered/Not Resolved]
  - Pain [Not Recovered/Not Resolved]
  - Headache [Recovered/Resolved]
  - Anal fissure [Not Recovered/Not Resolved]
  - Anal abscess [Not Recovered/Not Resolved]
